FAERS Safety Report 22134940 (Version 1)
Quarter: 2023Q1

REPORT INFORMATION
  Report Type: Spontaneous
  Country: US (occurrence: None)
  Receive Date: 20230323
  Receipt Date: 20230323
  Transmission Date: 20230418
  Serious: Yes (Other)
  Sender: FDA-Public Use
  Company Number: None

PATIENT
  Age: 76 Year
  Sex: 0

DRUGS (1)
  1. CILGAVIMAB\TIXAGEVIMAB [Suspect]
     Active Substance: CILGAVIMAB\TIXAGEVIMAB
     Indication: COVID-19

REACTIONS (6)
  - Fatigue [None]
  - Dizziness [None]
  - Pain [None]
  - Asthenia [None]
  - Chills [None]
  - Dyspnoea exertional [None]

NARRATIVE: CASE EVENT DATE: 20220722
